FAERS Safety Report 23910470 (Version 5)
Quarter: 2025Q1

REPORT INFORMATION
  Report Type: Report from Study
  Country: US (occurrence: US)
  Receive Date: 20240528
  Receipt Date: 20250328
  Transmission Date: 20250408
  Serious: Yes (Death, Hospitalization, Other)
  Sender: SUNOVION
  Company Number: US-MYOVANT SCIENCES GMBH-2024MYSCI0500492

PATIENT

DRUGS (5)
  1. ORGOVYX [Suspect]
     Active Substance: RELUGOLIX
     Indication: Prostate cancer
     Dosage: 120 MILLIGRAM, QD
     Route: 048
  2. ORGOVYX [Suspect]
     Active Substance: RELUGOLIX
     Dosage: 120 MG, QD
     Route: 048
     Dates: start: 20240309
  3. ORGOVYX [Suspect]
     Active Substance: RELUGOLIX
     Route: 048
  4. ORGOVYX [Suspect]
     Active Substance: RELUGOLIX
     Dosage: 120 MG, QD
     Route: 048
  5. ORGOVYX [Suspect]
     Active Substance: RELUGOLIX
     Route: 048

REACTIONS (9)
  - Death [Fatal]
  - Oxygen saturation decreased [Unknown]
  - Jaundice [Unknown]
  - Dysuria [Unknown]
  - Pain [Unknown]
  - Chronic obstructive pulmonary disease [Unknown]
  - Productive cough [Unknown]
  - Blood test abnormal [Unknown]
  - Abdominal discomfort [Unknown]
